FAERS Safety Report 20707125 (Version 1)
Quarter: 2022Q2

REPORT INFORMATION
  Report Type: Report from Study
  Country: US (occurrence: US)
  Receive Date: 20220413
  Receipt Date: 20220413
  Transmission Date: 20220720
  Serious: Yes (Other)
  Sender: FDA-Public Use
  Company Number: US-UCBSA-2022020413

PATIENT
  Age: 23 Year
  Sex: Female
  Weight: 51.1 kg

DRUGS (13)
  1. CERTOLIZUMAB PEGOL [Suspect]
     Active Substance: CERTOLIZUMAB PEGOL
     Indication: Juvenile idiopathic arthritis
     Dosage: 100 MILLIGRAM, EV 2 WEEKS(QOW)
     Route: 058
     Dates: end: 20220321
  2. FOLVITE [FOLIC ACID] [Concomitant]
     Indication: Drug toxicity prophylaxis
     Dosage: 1 MILLIGRAM, ONCE DAILY (QD)
     Route: 048
     Dates: start: 20140303
  3. DYNACIN [MINOCYCLINE HYDROCHLORIDE] [Concomitant]
     Indication: Acne
     Dosage: 100 MILLIGRAM, ONCE DAILY (QD)
     Route: 048
     Dates: start: 20140618
  4. MICROGESTIN FE [Concomitant]
     Active Substance: ETHINYL ESTRADIOL\FERROUS FUMARATE\NORETHINDRONE ACETATE
     Indication: Oral contraception
     Dosage: 1 DOSAGE FORM, ONCE DAILY (QD)
     Route: 048
     Dates: start: 20140728
  5. GEBAUERS PAIN EASE [Concomitant]
     Indication: Hypoaesthesia
     Dosage: 1 SPRAY, AS NEEDED (PRN)
     Route: 061
     Dates: start: 20141222
  6. DICLOFENAC [Concomitant]
     Active Substance: DICLOFENAC
     Indication: Juvenile idiopathic arthritis
     Dosage: 2 GRAM, AS NEEDED (PRN)
     Route: 061
     Dates: start: 20160608
  7. BENZAMYCIN [Concomitant]
     Active Substance: BENZOYL PEROXIDE\ERYTHROMYCIN
     Indication: Acne
     Dosage: 1 APPLICATION, AS NEEDED (PRN)
     Route: 061
     Dates: start: 20161124
  8. BENZAMYCIN [Concomitant]
     Active Substance: BENZOYL PEROXIDE\ERYTHROMYCIN
     Dosage: 1 APPLICATION, ONCE DAILY (QD)
     Route: 061
     Dates: start: 20140222, end: 20161123
  9. MOBIC [Concomitant]
     Active Substance: MELOXICAM
     Indication: Juvenile idiopathic arthritis
     Dosage: 7.5 MILLIGRAM, ONCE DAILY (QD)
     Route: 048
     Dates: start: 20140618, end: 20150218
  10. MOBIC [Concomitant]
     Active Substance: MELOXICAM
     Indication: Arthralgia
     Dosage: 7.5 MILLIGRAM, AS NEEDED (PRN)
     Route: 048
     Dates: start: 20150219, end: 20150316
  11. MOBIC [Concomitant]
     Active Substance: MELOXICAM
     Dosage: 7.5 MILLIGRAM, ONCE DAILY (QD)
     Route: 048
     Dates: start: 20150317, end: 20170626
  12. MOBIC [Concomitant]
     Active Substance: MELOXICAM
     Dosage: 7.5 MILLIGRAM, AS NEEDED (PRN)
     Route: 048
     Dates: start: 20170627
  13. MOBIC [Concomitant]
     Active Substance: MELOXICAM
     Dosage: 7.5 MILLIGRAM, ONE TIME DOSE
     Route: 048
     Dates: start: 20190113, end: 20190113

REACTIONS (3)
  - Pregnancy on oral contraceptive [Unknown]
  - Maternal exposure before pregnancy [Unknown]
  - Maternal exposure during pregnancy [Unknown]

NARRATIVE: CASE EVENT DATE: 20220320
